FAERS Safety Report 4719719-8 (Version None)
Quarter: 2005Q3

REPORT INFORMATION
  Report Type: 
  Country: None (occurrence: None)
  Receive Date: 20050721
  Receipt Date: 20040629
  Transmission Date: 20060218
  Serious: Yes (Hospitalization)
  Sender: FDA-Public Use
  Company Number: US-GLAXOSMITHKLINE-A0516593A

PATIENT
  Age: 56 Year
  Sex: Male

DRUGS (8)
  1. AVANDIA [Suspect]
     Route: 048
     Dates: start: 19991122, end: 20011123
  2. GLYBURIDE [Concomitant]
     Dosage: 10MG TWICE PER DAY
     Route: 048
  3. LIPITOR [Concomitant]
     Dosage: 10MG PER DAY
     Route: 048
  4. VIAGRA [Concomitant]
     Route: 048
  5. NEXIUM [Concomitant]
     Dosage: 20MG PER DAY
     Route: 048
  6. QUINAPRIL [Concomitant]
     Route: 048
  7. ZESTRIL [Concomitant]
     Dosage: 40MG PER DAY
     Route: 048
  8. ASPIRIN [Concomitant]
     Route: 048

REACTIONS (1)
  - CARDIAC FAILURE CONGESTIVE [None]
